FAERS Safety Report 25136195 (Version 1)
Quarter: 2025Q1

REPORT INFORMATION
  Report Type: Spontaneous
  Country: US (occurrence: US)
  Receive Date: 20250328
  Receipt Date: 20250328
  Transmission Date: 20250408
  Serious: Yes (Hospitalization, Other)
  Sender: VIIV
  Company Number: US-VIIV HEALTHCARE-US2024143172

PATIENT

DRUGS (2)
  1. TRIUMEQ [Suspect]
     Active Substance: ABACAVIR SULFATE\DOLUTEGRAVIR SODIUM\LAMIVUDINE
     Indication: HIV infection
     Dosage: UNK, QD 600-50-300MG
     Route: 048
     Dates: start: 2020
  2. DOVATO [Concomitant]
     Active Substance: DOLUTEGRAVIR SODIUM\LAMIVUDINE
     Indication: HIV infection
     Dosage: UNK, QD 50-300MG
     Route: 048
     Dates: start: 202501

REACTIONS (3)
  - Nausea [Recovered/Resolved]
  - Cholelithiasis [Unknown]
  - Tonsillolith [Not Recovered/Not Resolved]

NARRATIVE: CASE EVENT DATE: 20240301
